FAERS Safety Report 11859491 (Version 1)
Quarter: 2015Q4

REPORT INFORMATION
  Report Type: Report from Study
  Country: PR (occurrence: PR)
  Receive Date: 20151221
  Receipt Date: 20151221
  Transmission Date: 20160305
  Serious: Yes (Hospitalization, Other)
  Sender: FDA-Public Use
  Company Number: PR-ABBVIE-15P-131-1456369-00

PATIENT
  Age: 52 Year
  Sex: Female
  Weight: 163.44 kg

DRUGS (5)
  1. HUMIRA [Suspect]
     Active Substance: ADALIMUMAB
     Indication: PSORIATIC ARTHROPATHY
     Dosage: LOADING DOSE
     Route: 058
     Dates: start: 2015, end: 2015
  2. INSULIN [Concomitant]
     Active Substance: INSULIN NOS
     Indication: DIABETES MELLITUS
     Route: 058
     Dates: start: 201508
  3. HUMIRA [Suspect]
     Active Substance: ADALIMUMAB
     Route: 058
     Dates: start: 201511
  4. HUMIRA [Suspect]
     Active Substance: ADALIMUMAB
     Route: 058
     Dates: start: 201505, end: 20150721
  5. HUMALOG [Concomitant]
     Active Substance: INSULIN LISPRO
     Indication: DIABETES MELLITUS
     Route: 058
     Dates: start: 201508

REACTIONS (8)
  - Abscess limb [Recovered/Resolved]
  - Arthralgia [Not Recovered/Not Resolved]
  - Abscess bacterial [Recovered/Resolved]
  - Bacterial infection [Recovered/Resolved]
  - Psoriasis [Not Recovered/Not Resolved]
  - Drug hypersensitivity [Unknown]
  - Bacterial infection [Recovering/Resolving]
  - Necrosis [Recovered/Resolved]

NARRATIVE: CASE EVENT DATE: 2015
